FAERS Safety Report 15432652 (Version 1)
Quarter: 2018Q3

REPORT INFORMATION
  Report Type: Spontaneous
  Country: DE (occurrence: DE)
  Receive Date: 20180927
  Receipt Date: 20180927
  Transmission Date: 20181010
  Serious: Yes (Hospitalization, Other)
  Sender: FDA-Public Use
  Company Number: DE-SUN PHARMACEUTICAL INDUSTRIES LTD-2018RR-185393

PATIENT
  Age: 68 Year
  Sex: Female
  Weight: 49 kg

DRUGS (102)
  1. CALCIUM FOLINAT [Suspect]
     Active Substance: LEUCOVORIN CALCIUM
     Dosage: 636 UNK
     Route: 042
     Dates: start: 20180125, end: 20180125
  2. CALCIUM FOLINAT [Suspect]
     Active Substance: LEUCOVORIN CALCIUM
     Dosage: 636 UNK
     Route: 042
     Dates: start: 20171212, end: 20171212
  3. CALCIUM FOLINAT [Suspect]
     Active Substance: LEUCOVORIN CALCIUM
     Dosage: 636 UNK
     Route: 042
     Dates: start: 20170427, end: 20170427
  4. CALCIUM FOLINAT [Suspect]
     Active Substance: LEUCOVORIN CALCIUM
     Dosage: 636 MG, UNK
     Route: 042
     Dates: start: 20170822, end: 20170822
  5. CALCIUM FOLINAT [Suspect]
     Active Substance: LEUCOVORIN CALCIUM
     Dosage: 636 UNK
     Route: 042
     Dates: start: 20180322, end: 20180322
  6. CERNEVIT [ASCORBIC ACID;BIOTIN;COCARBOXYLASE TETRAHYDRATE;COLECALCI... [Concomitant]
     Indication: PRODUCT USED FOR UNKNOWN INDICATION
     Dosage: UNK ()
     Route: 065
     Dates: start: 20180406, end: 20180406
  7. FLUOROURACIL. [Suspect]
     Active Substance: FLUOROURACIL
     Dosage: 636 UNK
     Route: 042
     Dates: start: 20171017, end: 20171017
  8. FLUOROURACIL. [Suspect]
     Active Substance: FLUOROURACIL
     Dosage: 3816 UNK
     Route: 042
     Dates: start: 20170919, end: 20170921
  9. FLUOROURACIL. [Suspect]
     Active Substance: FLUOROURACIL
     Dosage: 3816 UNK
     Route: 042
     Dates: start: 20171212, end: 20171214
  10. FLUOROURACIL. [Suspect]
     Active Substance: FLUOROURACIL
     Dosage: 636 UNK
     Route: 042
     Dates: start: 20170919, end: 20170919
  11. FLUOROURACIL. [Suspect]
     Active Substance: FLUOROURACIL
     Dosage: 636 UNK
     Route: 042
     Dates: start: 20170413, end: 20170413
  12. OXALIPLATIN. [Suspect]
     Active Substance: OXALIPLATIN
     Dosage: 135 UNK
     Route: 042
     Dates: start: 20170302, end: 20170302
  13. OXALIPLATIN. [Suspect]
     Active Substance: OXALIPLATIN
     Dosage: 135 MG, UNK
     Route: 042
     Dates: start: 20170613, end: 20170613
  14. CALCIUM FOLINAT [Suspect]
     Active Substance: LEUCOVORIN CALCIUM
     Dosage: 636 UNK
     Route: 042
     Dates: start: 20170413, end: 20170413
  15. FENTANYL. [Concomitant]
     Active Substance: FENTANYL
     Indication: PRODUCT USED FOR UNKNOWN INDICATION
     Dosage: ()
     Route: 065
  16. FLUOROURACIL. [Suspect]
     Active Substance: FLUOROURACIL
     Dosage: 3816 UNK
     Route: 042
     Dates: start: 20170613, end: 20170615
  17. FLUOROURACIL. [Suspect]
     Active Substance: FLUOROURACIL
     Dosage: 3816 UNK
     Route: 042
     Dates: start: 20170627, end: 20170629
  18. FLUOROURACIL. [Suspect]
     Active Substance: FLUOROURACIL
     Dosage: 636 UNK
     Route: 042
     Dates: start: 20170302, end: 20170302
  19. FLUOROURACIL. [Suspect]
     Active Substance: FLUOROURACIL
     Dosage: 3816 UNK
     Route: 042
     Dates: start: 20170302, end: 20170304
  20. FLUOROURACIL. [Suspect]
     Active Substance: FLUOROURACIL
     Dosage: 3816 MG, UNK
     Route: 042
     Dates: start: 20180222, end: 20180224
  21. FLUOROURACIL. [Suspect]
     Active Substance: FLUOROURACIL
     Dosage: 3816 UNK
     Route: 042
     Dates: start: 20180308, end: 20180310
  22. FLUOROURACIL. [Suspect]
     Active Substance: FLUOROURACIL
     Dosage: 3816 UNK
     Route: 042
     Dates: start: 20170822, end: 20170824
  23. MAGNESIUM [Concomitant]
     Active Substance: MAGNESIUM
     Indication: PRODUCT USED FOR UNKNOWN INDICATION
     Dosage: UNK ()
     Route: 065
     Dates: start: 19980101
  24. OXALIPLATIN. [Suspect]
     Active Substance: OXALIPLATIN
     Indication: ADENOCARCINOMA GASTRIC
     Dosage: 135,UNK
     Route: 042
     Dates: start: 20170413, end: 20170413
  25. OXALIPLATIN. [Suspect]
     Active Substance: OXALIPLATIN
     Dosage: 135 MG, UNK
     Route: 042
     Dates: start: 20170330, end: 20170330
  26. CALCIUM FOLINAT [Suspect]
     Active Substance: LEUCOVORIN CALCIUM
     Dosage: 636 UNK
     Route: 042
     Dates: start: 20170511, end: 20170511
  27. CALCIUM FOLINAT [Suspect]
     Active Substance: LEUCOVORIN CALCIUM
     Dosage: 636 UNK
     Route: 042
     Dates: start: 20180308, end: 20180308
  28. CALCIUM FOLINAT [Suspect]
     Active Substance: LEUCOVORIN CALCIUM
     Dosage: 636 UNK
     Route: 042
     Dates: start: 20171128, end: 20171128
  29. ADDEL N [CHROMIC CHLORIDE;COPPER CHLORIDE DIHYDRATE;FERRIC CHLORIDE... [Concomitant]
     Indication: PRODUCT USED FOR UNKNOWN INDICATION
     Dosage: UNK ()
     Route: 065
     Dates: start: 20180406, end: 20180406
  30. MOVICOL [Concomitant]
     Active Substance: POLYETHYLENE GLYCOL 3350\POTASSIUM CHLORIDE\SODIUM BICARBONATE\SODIUM CHLORIDE
     Indication: PRODUCT USED FOR UNKNOWN INDICATION
     Dosage: UNK ()
     Route: 065
     Dates: start: 2007
  31. LYRICA [Concomitant]
     Active Substance: PREGABALIN
     Indication: PRODUCT USED FOR UNKNOWN INDICATION
     Dosage: UNK ()
     Route: 065
     Dates: start: 20180110
  32. METOCLOPRAMID [METOCLOPRAMIDE HYDROCHLORIDE] [Concomitant]
     Indication: PRODUCT USED FOR UNKNOWN INDICATION
     Dosage: UNK ()
     Route: 065
     Dates: start: 20180110
  33. PERFALGAN [Suspect]
     Active Substance: ACETAMINOPHEN
     Indication: PRODUCT USED FOR UNKNOWN INDICATION
     Dosage: UNK UNK, UNK ()
     Route: 065
  34. FLUOROURACIL. [Suspect]
     Active Substance: FLUOROURACIL
     Dosage: 3816 UNK
     Route: 042
     Dates: start: 20170711, end: 20170713
  35. FLUOROURACIL. [Suspect]
     Active Substance: FLUOROURACIL
     Dosage: 636 UNK
     Route: 042
     Dates: start: 20170330, end: 20170330
  36. FLUOROURACIL. [Suspect]
     Active Substance: FLUOROURACIL
     Dosage: 3816 UNK
     Route: 042
     Dates: start: 20171128, end: 20171130
  37. FLUOROURACIL. [Suspect]
     Active Substance: FLUOROURACIL
     Dosage: 636 UNK
     Route: 042
     Dates: start: 20171114, end: 20171114
  38. DICLOFENAC [Suspect]
     Active Substance: DICLOFENAC
     Indication: PRODUCT USED FOR UNKNOWN INDICATION
     Dosage: UNK UNK, UNK ()
     Route: 065
     Dates: end: 20170424
  39. OXALIPLATIN. [Suspect]
     Active Substance: OXALIPLATIN
     Dosage: 135 UNK
     Route: 042
     Dates: start: 20170530, end: 20170530
  40. OXALIPLATIN. [Suspect]
     Active Substance: OXALIPLATIN
     Dosage: 135 UNK
     Route: 042
     Dates: start: 20170711, end: 20170711
  41. CALCIUM FOLINAT [Suspect]
     Active Substance: LEUCOVORIN CALCIUM
     Dosage: 636 UNK
     Route: 042
     Dates: start: 20170711, end: 20170711
  42. CALCIUM FOLINAT [Suspect]
     Active Substance: LEUCOVORIN CALCIUM
     Dosage: 636 MG, UNK
     Route: 042
     Dates: start: 20180222, end: 20180222
  43. CALCIUM FOLINAT [Suspect]
     Active Substance: LEUCOVORIN CALCIUM
     Dosage: 636 UNK
     Route: 042
     Dates: start: 20170725, end: 20170725
  44. ONDANSETRON [Concomitant]
     Active Substance: ONDANSETRON
     Indication: PRODUCT USED FOR UNKNOWN INDICATION
     Dosage: ()
     Route: 065
  45. DUROGESIC SMAT [Concomitant]
     Active Substance: FENTANYL
     Indication: PRODUCT USED FOR UNKNOWN INDICATION
     Dosage: UNK ()
     Route: 065
     Dates: start: 20170221
  46. FLUOROURACIL. [Suspect]
     Active Substance: FLUOROURACIL
     Dosage: 3816 UNK
     Route: 042
     Dates: start: 20170511, end: 20170513
  47. FLUOROURACIL. [Suspect]
     Active Substance: FLUOROURACIL
     Dosage: 3816 UNK
     Route: 042
     Dates: start: 20170808, end: 20170810
  48. FLUOROURACIL. [Suspect]
     Active Substance: FLUOROURACIL
     Dosage: 636 UNK
     Route: 042
     Dates: start: 20170822, end: 20170822
  49. FLUOROURACIL. [Suspect]
     Active Substance: FLUOROURACIL
     Dosage: 3816 UNK
     Route: 042
     Dates: start: 20170725, end: 20170727
  50. FLUOROURACIL. [Suspect]
     Active Substance: FLUOROURACIL
     Dosage: 3816 UNK
     Route: 042
     Dates: start: 20170330, end: 20170401
  51. PANTOPRAZOLE [Concomitant]
     Active Substance: PANTOPRAZOLE
     Indication: PRODUCT USED FOR UNKNOWN INDICATION
     Dosage: UNK ()
     Route: 065
     Dates: start: 20170215
  52. SYMBICORT [Concomitant]
     Active Substance: BUDESONIDE\FORMOTEROL FUMARATE DIHYDRATE
     Indication: PRODUCT USED FOR UNKNOWN INDICATION
     Dosage: ()
     Route: 065
  53. OXALIPLATIN. [Suspect]
     Active Substance: OXALIPLATIN
     Dosage: 135 MG, UNK
     Route: 042
     Dates: start: 20170316, end: 20170316
  54. OXALIPLATIN. [Suspect]
     Active Substance: OXALIPLATIN
     Dosage: 135 UNK
     Route: 042
     Dates: start: 20170427, end: 20170427
  55. CALCIUM FOLINAT [Suspect]
     Active Substance: LEUCOVORIN CALCIUM
     Dosage: 636 MG, UNK
     Route: 042
     Dates: start: 20170330, end: 20170330
  56. FLUOROURACIL. [Suspect]
     Active Substance: FLUOROURACIL
     Dosage: 3816 UNK
     Route: 042
     Dates: start: 20171101, end: 20171103
  57. FLUOROURACIL. [Suspect]
     Active Substance: FLUOROURACIL
     Dosage: 636 UNK
     Route: 042
     Dates: start: 20170808, end: 20170808
  58. FLUOROURACIL. [Suspect]
     Active Substance: FLUOROURACIL
     Dosage: 636 UNK
     Route: 042
     Dates: start: 20170302, end: 20170302
  59. FLUOROURACIL. [Suspect]
     Active Substance: FLUOROURACIL
     Dosage: 3816 UNK
     Route: 042
     Dates: start: 20180405, end: 20180407
  60. NOVAMINSULFON INJEKT [Suspect]
     Active Substance: METAMIZOLE SODIUM
     Indication: ABDOMINAL PAIN UPPER
     Dosage: UNK UNK, UNK ()
     Route: 042
     Dates: start: 20180109
  61. OXALIPLATIN. [Suspect]
     Active Substance: OXALIPLATIN
     Dosage: 135 UNK
     Route: 042
     Dates: start: 20170627, end: 20170627
  62. CALCIUM FOLINAT [Suspect]
     Active Substance: LEUCOVORIN CALCIUM
     Indication: ADENOCARCINOMA GASTRIC
     Dosage: 636 MG, UNK
     Route: 042
     Dates: start: 20180405, end: 20180405
  63. CALCIUM FOLINAT [Suspect]
     Active Substance: LEUCOVORIN CALCIUM
     Dosage: 636 UNK
     Route: 042
     Dates: start: 20170627, end: 20170627
  64. CALCIUM FOLINAT [Suspect]
     Active Substance: LEUCOVORIN CALCIUM
     Dosage: 636 UNK
     Route: 042
     Dates: start: 20171101, end: 20171101
  65. CALCIUM FOLINAT [Suspect]
     Active Substance: LEUCOVORIN CALCIUM
     Dosage: 636 UNK
     Route: 042
     Dates: start: 20170808, end: 20170808
  66. CLEXANE [Suspect]
     Active Substance: ENOXAPARIN SODIUM
     Indication: PRODUCT USED FOR UNKNOWN INDICATION
     Dosage: UNK UNK, UNK ()
     Route: 065
  67. RINGERS SOLUTION [Concomitant]
     Active Substance: CALCIUM CHLORIDE\POTASSIUM CHLORIDE\SODIUM CHLORIDE
     Indication: PRODUCT USED FOR UNKNOWN INDICATION
     Dosage: UNK ()
     Route: 065
     Dates: start: 20180406, end: 20180406
  68. FLUOROURACIL. [Suspect]
     Active Substance: FLUOROURACIL
     Indication: ADENOCARCINOMA GASTRIC
     Dosage: 636 UNK ()
     Route: 042
     Dates: start: 20170711, end: 20170711
  69. FLUOROURACIL. [Suspect]
     Active Substance: FLUOROURACIL
     Dosage: 3816 UNK
     Route: 042
     Dates: start: 20171004, end: 20171006
  70. FLUOROURACIL. [Suspect]
     Active Substance: FLUOROURACIL
     Dosage: 3816 UNK
     Route: 042
     Dates: start: 20180322, end: 20180324
  71. FLUOROURACIL. [Suspect]
     Active Substance: FLUOROURACIL
     Dosage: 3816 UNK
     Route: 042
     Dates: start: 20171114, end: 20171116
  72. FLUOROURACIL. [Suspect]
     Active Substance: FLUOROURACIL
     Dosage: 636 UNK
     Route: 042
     Dates: start: 20171101, end: 20171101
  73. FLUOROURACIL. [Suspect]
     Active Substance: FLUOROURACIL
     Dosage: 636 UNK
     Route: 042
     Dates: start: 20170316, end: 20170316
  74. FLUOROURACIL. [Suspect]
     Active Substance: FLUOROURACIL
     Dosage: 3816 MG, UNK
     Route: 042
     Dates: start: 20180208, end: 20180210
  75. FLUOROURACIL. [Suspect]
     Active Substance: FLUOROURACIL
     Dosage: 636 UNK
     Route: 042
     Dates: start: 20171104, end: 20171104
  76. INNOHEP [Concomitant]
     Active Substance: TINZAPARIN SODIUM
     Indication: PRODUCT USED FOR UNKNOWN INDICATION
     Dosage: ()
     Route: 065
  77. OXALIPLATIN. [Suspect]
     Active Substance: OXALIPLATIN
     Dosage: 135 MG, UNK
     Route: 042
     Dates: start: 20170725, end: 20170725
  78. OXALIPLATIN. [Suspect]
     Active Substance: OXALIPLATIN
     Dosage: 135 UNK
     Route: 042
     Dates: start: 20170511, end: 20170511
  79. CALCIUM FOLINAT [Suspect]
     Active Substance: LEUCOVORIN CALCIUM
     Dosage: 636 UNK
     Route: 042
     Dates: start: 20180208, end: 20180208
  80. CALCIUM FOLINAT [Suspect]
     Active Substance: LEUCOVORIN CALCIUM
     Dosage: 636 MG
     Route: 042
     Dates: start: 20171004, end: 20171004
  81. CALCIUM FOLINAT [Suspect]
     Active Substance: LEUCOVORIN CALCIUM
     Dosage: 636 UNK
     Route: 042
     Dates: start: 20170530, end: 20170530
  82. CALCIUM FOLINAT [Suspect]
     Active Substance: LEUCOVORIN CALCIUM
     Dosage: 636 MG, UNK
     Route: 042
     Dates: start: 20171017, end: 20171017
  83. CALCIUM FOLINAT [Suspect]
     Active Substance: LEUCOVORIN CALCIUM
     Dosage: 636 MG, UNK
     Route: 042
     Dates: start: 20171114, end: 20171114
  84. CALCIUM FOLINAT [Suspect]
     Active Substance: LEUCOVORIN CALCIUM
     Dosage: 636 UNK
     Route: 042
     Dates: start: 20170316, end: 20170316
  85. KREON [Concomitant]
     Active Substance: PANCRELIPASE
     Indication: PRODUCT USED FOR UNKNOWN INDICATION
     Dosage: UNK ()
     Route: 065
  86. FLUOROURACIL. [Suspect]
     Active Substance: FLUOROURACIL
     Dosage: 636 UNK
     Route: 042
     Dates: start: 20170511, end: 20170511
  87. FLUOROURACIL. [Suspect]
     Active Substance: FLUOROURACIL
     Dosage: 636 UNK
     Route: 042
     Dates: start: 20171128, end: 20171128
  88. FLUOROURACIL. [Suspect]
     Active Substance: FLUOROURACIL
     Dosage: 636 UNK
     Route: 042
     Dates: start: 20170725, end: 20170725
  89. NEUROTRAT B12 [Concomitant]
     Indication: PRODUCT USED FOR UNKNOWN INDICATION
     Dosage: UNK ()
     Route: 065
     Dates: start: 20180125
  90. CALCIUM FOLINAT [Suspect]
     Active Substance: LEUCOVORIN CALCIUM
     Dosage: 636 UNK
     Route: 042
     Dates: start: 20170302, end: 20170302
  91. CALCIUM FOLINAT [Suspect]
     Active Substance: LEUCOVORIN CALCIUM
     Dosage: 636 UNK
     Route: 042
     Dates: start: 20170919, end: 20170919
  92. LAXANS [Concomitant]
     Indication: PRODUCT USED FOR UNKNOWN INDICATION
     Dosage: UNK ()
     Route: 065
  93. TRAMAL [Suspect]
     Active Substance: TRAMADOL
     Indication: PRODUCT USED FOR UNKNOWN INDICATION
     Dosage: UNK UNK, UNK ()
     Route: 065
  94. FLUOROURACIL. [Suspect]
     Active Substance: FLUOROURACIL
     Dosage: 3816 UNK
     Route: 042
     Dates: start: 20180125, end: 20180127
  95. FLUOROURACIL. [Suspect]
     Active Substance: FLUOROURACIL
     Dosage: 636 UNK
     Route: 042
     Dates: start: 20180222, end: 20180222
  96. FLUOROURACIL. [Suspect]
     Active Substance: FLUOROURACIL
     Dosage: 636 UNK
     Route: 042
     Dates: start: 20170613, end: 20170613
  97. FLUOROURACIL. [Suspect]
     Active Substance: FLUOROURACIL
     Dosage: 3816 UNK
     Route: 042
     Dates: start: 20171017, end: 20171019
  98. FLUOROURACIL. [Suspect]
     Active Substance: FLUOROURACIL
     Dosage: 636 UNK
     Route: 042
     Dates: start: 20180405, end: 20180405
  99. FLUOROURACIL. [Suspect]
     Active Substance: FLUOROURACIL
     Dosage: 636 UNK
     Route: 042
     Dates: start: 20170627, end: 20170627
  100. FLUOROURACIL. [Suspect]
     Active Substance: FLUOROURACIL
     Dosage: 636 UNK
     Route: 042
     Dates: start: 20170427, end: 20170427
  101. XARELTO [Concomitant]
     Active Substance: RIVAROXABAN
     Indication: PRODUCT USED FOR UNKNOWN INDICATION
     Dosage: UNK ()
     Route: 065
     Dates: start: 20170809
  102. CENTRUM A TO ZINC [Concomitant]
     Indication: PRODUCT USED FOR UNKNOWN INDICATION
     Dosage: UNK ()
     Route: 065
     Dates: start: 20180105

REACTIONS (1)
  - Hip fracture [Recovered/Resolved]

NARRATIVE: CASE EVENT DATE: 20180506
